FAERS Safety Report 8165823-4 (Version None)
Quarter: 2012Q1

REPORT INFORMATION
  Report Type: 
  Country: None (occurrence: None)
  Receive Date: 20120227
  Receipt Date: 20120223
  Transmission Date: 20120608
  Serious: No
  Sender: FDA-Public Use
  Company Number: US-PFIZER INC-K201100832

PATIENT
  Sex: Male

DRUGS (2)
  1. FLECTOR [Suspect]
     Dosage: UNK
     Route: 061
  2. NAPROXEN (ALEVE) [Concomitant]
     Dosage: UNK

REACTIONS (1)
  - BLISTER [None]
